FAERS Safety Report 13854804 (Version 2)
Quarter: 2017Q3

REPORT INFORMATION
  Report Type: Report from Study
  Country: BR (occurrence: BR)
  Receive Date: 20170810
  Receipt Date: 20170814
  Transmission Date: 20171127
  Serious: Yes (Life-Threatening, Hospitalization)
  Sender: FDA-Public Use
  Company Number: PHHY2017BR117664

PATIENT
  Sex: Female
  Weight: 68 kg

DRUGS (1)
  1. GLIVEC [Suspect]
     Active Substance: IMATINIB MESYLATE
     Indication: CHRONIC MYELOID LEUKAEMIA
     Dosage: 3 DF, QD
     Route: 048
     Dates: start: 2010

REACTIONS (5)
  - Weight decreased [Unknown]
  - Vomiting [Recovering/Resolving]
  - Asthenia [Recovering/Resolving]
  - Feeling abnormal [Unknown]
  - Full blood count decreased [Recovering/Resolving]
